FAERS Safety Report 9657794 (Version 1)
Quarter: 2013Q4

REPORT INFORMATION
  Report Type: Spontaneous
  Country: US (occurrence: None)
  Receive Date: 20131029
  Receipt Date: 20131029
  Transmission Date: 20140711
  Serious: Yes (Other)
  Sender: FDA-Public Use
  Company Number: 1971533

PATIENT
  Age: 46 Year
  Sex: Male

DRUGS (2)
  1. CARBOPLATIN [Suspect]
     Indication: ADENOCARCINOMA
     Dosage: UNKNOWN
     Dates: start: 20130329
  2. PEMETREXED [Suspect]
     Indication: ADENOCARCINOMA
     Dates: start: 20130329

REACTIONS (1)
  - Pulmonary embolism [None]
